FAERS Safety Report 13720625 (Version 2)
Quarter: 2017Q3

REPORT INFORMATION
  Report Type: Report from Study
  Country: US (occurrence: US)
  Receive Date: 20170706
  Receipt Date: 20170803
  Transmission Date: 20171127
  Serious: Yes (Other)
  Sender: FDA-Public Use
  Company Number: PHEH2017US020672

PATIENT
  Age: 24 Year
  Sex: Female
  Weight: 90.71 kg

DRUGS (3)
  1. ILARIS [Suspect]
     Active Substance: CANAKINUMAB
     Dosage: UNK, EVERY 4 WEEKS
     Route: 058
     Dates: start: 20170628
  2. ILARIS [Suspect]
     Active Substance: CANAKINUMAB
     Indication: CRYOPYRIN ASSOCIATED PERIODIC SYNDROME
     Dosage: UNK, EVERY 4 WEEKS
     Route: 058
  3. ILARIS [Suspect]
     Active Substance: CANAKINUMAB
     Dosage: UNK, EVERY 4 WEEKS
     Route: 058
     Dates: start: 20170528

REACTIONS (8)
  - Pneumonia [Unknown]
  - Irritability [Unknown]
  - Tension [Unknown]
  - Inappropriate schedule of drug administration [Unknown]
  - Pain [Unknown]
  - Pyrexia [Unknown]
  - Anger [Unknown]
  - Nasopharyngitis [Unknown]

NARRATIVE: CASE EVENT DATE: 201701
